FAERS Safety Report 23533332 (Version 2)
Quarter: 2024Q1

REPORT INFORMATION
  Report Type: Report from Study
  Country: CA (occurrence: CA)
  Receive Date: 20240216
  Receipt Date: 20240228
  Transmission Date: 20240410
  Serious: Yes (Other)
  Sender: FDA-Public Use
  Company Number: CA-SANDOZ-SDZ2024CA014518

PATIENT
  Sex: Female

DRUGS (3)
  1. ERELZI [Suspect]
     Active Substance: ETANERCEPT-SZZS
     Dosage: 400 G
     Route: 048
     Dates: start: 20231204, end: 20240204
  2. ERELZI [Suspect]
     Active Substance: ETANERCEPT-SZZS
     Indication: Rheumatoid arthritis
     Dosage: 50 MG
     Route: 058
     Dates: start: 20231006
  3. SULFASALAZINE [Concomitant]
     Active Substance: SULFASALAZINE
     Indication: Product used for unknown indication
     Dosage: 500 MG, BID
     Route: 065

REACTIONS (7)
  - Colitis [Unknown]
  - Pain [Unknown]
  - Mobility decreased [Unknown]
  - Rash [Recovered/Resolved]
  - Eczema [Recovered/Resolved]
  - Nasopharyngitis [Recovering/Resolving]
  - Insomnia [Unknown]
